FAERS Safety Report 6753145-5 (Version None)
Quarter: 2010Q2

REPORT INFORMATION
  Report Type: 
  Country: None (occurrence: None)
  Receive Date: 20100601
  Receipt Date: 20100517
  Transmission Date: 20101027
  Serious: Yes (Hospitalization)
  Sender: FDA-Public Use
  Company Number: KV201000122

PATIENT
  Age: 66 Year
  Sex: Female
  Weight: 99.8 kg

DRUGS (13)
  1. PROPAFENONE HYDROCHLORIDE [Suspect]
     Indication: ATRIAL FIBRILLATION
     Dosage: 150 MG, TID, ORAL
     Route: 048
     Dates: start: 20080711, end: 20080925
  2. LEVOXYL [Concomitant]
  3. LASIX [Concomitant]
  4. ASPIRIN [Concomitant]
  5. ZOCOR [Concomitant]
  6. COUMADIN [Concomitant]
  7. METFORMIN HCL [Concomitant]
  8. METOPROLOL (METOPROLOL) [Concomitant]
  9. KEPPRA [Concomitant]
  10. JANUVIA [Concomitant]
  11. MAGNESIUM (MAGNESIUM) [Concomitant]
  12. LOMOTIL [Concomitant]
  13. SIMVASTATIN [Concomitant]

REACTIONS (23)
  - ASPIRATION [None]
  - ATRIAL FIBRILLATION [None]
  - BLOOD PRESSURE INCREASED [None]
  - BRADYCARDIA [None]
  - BRAIN NEOPLASM [None]
  - CARDIAC ARREST [None]
  - CARDIO-RESPIRATORY ARREST [None]
  - CEREBRAL INFARCTION [None]
  - DIARRHOEA [None]
  - DRUG INEFFECTIVE [None]
  - ENCEPHALOPATHY [None]
  - FATIGUE [None]
  - HEADACHE [None]
  - HYPERSOMNIA [None]
  - ISCHAEMIC STROKE [None]
  - NECROSIS [None]
  - PALPITATIONS [None]
  - PNEUMONIA [None]
  - PNEUMONIA STREPTOCOCCAL [None]
  - STAPHYLOCOCCAL INFECTION [None]
  - SYNCOPE [None]
  - VISUAL IMPAIRMENT [None]
  - VOMITING [None]
